FAERS Safety Report 21535825 (Version 5)
Quarter: 2023Q1

REPORT INFORMATION
  Report Type: Report from Study
  Country: US (occurrence: US)
  Receive Date: 20221101
  Receipt Date: 20230309
  Transmission Date: 20230418
  Serious: No
  Sender: FDA-Public Use
  Company Number: US-NOVARTISTESTPH-NVSC2022US245999

PATIENT
  Sex: Female

DRUGS (1)
  1. PROMACTA [Suspect]
     Active Substance: ELTROMBOPAG OLAMINE
     Indication: Aplastic anaemia
     Dosage: 150 MG, QD
     Route: 048

REACTIONS (18)
  - Tongue discomfort [Unknown]
  - Eructation [Unknown]
  - Gait inability [Unknown]
  - Dyspnoea [Unknown]
  - Hypoaesthesia [Unknown]
  - Confusional state [Unknown]
  - Weight decreased [Unknown]
  - Tongue discolouration [Unknown]
  - Taste disorder [Unknown]
  - Candida infection [Unknown]
  - Platelet count decreased [Unknown]
  - Red blood cell count increased [Unknown]
  - White blood cell count increased [Unknown]
  - Dizziness [Unknown]
  - Decreased appetite [Unknown]
  - Nausea [Unknown]
  - Vomiting [Unknown]
  - Asthenia [Unknown]
